FAERS Safety Report 9473426 (Version 1)
Quarter: 2013Q3

REPORT INFORMATION
  Report Type: Spontaneous
  Country: US (occurrence: US)
  Receive Date: 20130823
  Receipt Date: 20130823
  Transmission Date: 20140515
  Serious: Yes (Hospitalization, Other)
  Sender: FDA-Public Use
  Company Number: US-BRISTOL-MYERS SQUIBB COMPANY-18967356

PATIENT
  Age: 62 Year
  Sex: Male
  Weight: 89.79 kg

DRUGS (1)
  1. SPRYCEL [Suspect]
     Dosage: SPRYCEL 100MG DAILY, THEN CHANGED TO 100MG EVERY OTHER DAY

REACTIONS (3)
  - Pneumocystis jirovecii pneumonia [Unknown]
  - Pulmonary oedema [Unknown]
  - Weight decreased [Unknown]
